FAERS Safety Report 4771067-6 (Version None)
Quarter: 2005Q3

REPORT INFORMATION
  Report Type: 
  Country: None (occurrence: None)
  Receive Date: 20050915
  Receipt Date: 20050809
  Transmission Date: 20060218
  Serious: Yes (Death, Hospitalization)
  Sender: FDA-Public Use
  Company Number: CN-GILEAD-2005-0008613

PATIENT
  Sex: Male

DRUGS (1)
  1. ADEFOVIR DIPIVOXIL KIT [Suspect]
     Indication: HEPATITIS B
     Route: 048
     Dates: start: 20030113, end: 20050801

REACTIONS (13)
  - ANOREXIA [None]
  - DISORIENTATION [None]
  - HAEMODYNAMIC INSTABILITY [None]
  - HEPATIC ENCEPHALOPATHY [None]
  - HEPATIC FAILURE [None]
  - JAUNDICE [None]
  - LISTLESS [None]
  - LIVER TRANSPLANT [None]
  - LUNG INFECTION [None]
  - MALAISE [None]
  - MULTI-ORGAN FAILURE [None]
  - NAUSEA [None]
  - PERITONITIS BACTERIAL [None]
